FAERS Safety Report 8154021-6 (Version None)
Quarter: 2012Q1

REPORT INFORMATION
  Report Type: 
  Country: None (occurrence: None)
  Receive Date: 20120221
  Receipt Date: 20120221
  Transmission Date: 20120608
  Serious: Yes (Other)
  Sender: FDA-Public Use
  Company Number: None

PATIENT
  Age: 90 Year
  Sex: Female
  Weight: 58.967 kg

DRUGS (1)
  1. IMIQUIMOD [Suspect]
     Indication: ACTINIC KERATOSIS

REACTIONS (6)
  - CRYING [None]
  - DELIRIUM [None]
  - DEMENTIA [None]
  - COGNITIVE DISORDER [None]
  - PAIN [None]
  - RASH [None]
